FAERS Safety Report 25074229 (Version 2)
Quarter: 2025Q1

REPORT INFORMATION
  Report Type: Report from Study
  Country: US (occurrence: US)
  Receive Date: 20250313
  Receipt Date: 20250319
  Transmission Date: 20250409
  Serious: Yes (Hospitalization)
  Sender: ROCHE
  Company Number: US-ROCHE-10000228848

PATIENT
  Age: 20 Year
  Sex: Male

DRUGS (2)
  1. HEMLIBRA [Suspect]
     Active Substance: EMICIZUMAB-KXWH
     Indication: Factor VIII deficiency
     Dosage: INJECT 2.18ML (327MG) SUBCUTANEOUSLY EVERY 28 DAY(S) (2ML FROM 300MG VIAL AND 0.9ML FROM 30MG VIAL-
     Route: 058
  2. HEMLIBRA [Suspect]
     Active Substance: EMICIZUMAB-KXWH
     Dosage: INJECT 2.18ML (327MG) SUBCUTANEOUSLY EVERY 28 DAY(S) (2ML FROM300MG VIAL AND 0.9ML FROM 30MG VIAL-D
     Route: 058

REACTIONS (1)
  - Thrombosis [Unknown]
